FAERS Safety Report 24350511 (Version 1)
Quarter: 2024Q3

REPORT INFORMATION
  Report Type: Spontaneous
  Country: US (occurrence: None)
  Receive Date: 20240920
  Receipt Date: 20240920
  Transmission Date: 20241017
  Serious: Yes (Other)
  Sender: Public
  Company Number: None

PATIENT
  Age: 47 Year
  Sex: Male
  Weight: 162.3 kg

DRUGS (8)
  1. ALPROLIX [Suspect]
     Active Substance: EFTRENONACOG ALFA
     Indication: Factor IX deficiency
     Dosage: 4714 IU INTERNATIONAL UNIT(S) WEEL;U OMTRAVEMPIS
     Route: 042
     Dates: start: 20240711
  2. ALPROLIX [Suspect]
     Active Substance: EFTRENONACOG ALFA
     Indication: Factor IX deficiency
     Dosage: 1061 IU INTERNATIONAL UNIT(S)  WEEKLY INTRAVENOUS?
     Route: 042
     Dates: start: 20240711
  3. allopurinol 300 mg PO daily [Concomitant]
     Dosage: FREQUENCY : DAILY;?
     Route: 048
  4. celecoxib 200 mg PO BID PRN pain [Concomitant]
     Dosage: FREQUENCY : TWICE A DAY;?
     Route: 048
  5. omeprazole 20 mg PO daily [Concomitant]
     Dosage: FREQUENCY : DAILY;?
     Route: 048
  6. torsemide 10 mg PO daily PRN swelling [Concomitant]
     Dosage: FREQUENCY : DAILY;?
     Route: 048
  7. Vitamin D3 2,000 IU PO daily [Concomitant]
     Dosage: FREQUENCY : DAILY;?
     Route: 048
  8. Zyrtec 10 mg PO daily [Concomitant]
     Dosage: FREQUENCY : DAILY;?
     Route: 048

REACTIONS (4)
  - Chest pain [None]
  - Infusion related reaction [None]
  - Pain [None]
  - Back pain [None]

NARRATIVE: CASE EVENT DATE: 20240919
